FAERS Safety Report 9365305 (Version 3)
Quarter: 2013Q3

REPORT INFORMATION
  Report Type: Report from Study
  Country: US (occurrence: US)
  Receive Date: 20130625
  Receipt Date: 20130805
  Transmission Date: 20140515
  Serious: Yes (Hospitalization)
  Sender: FDA-Public Use
  Company Number: US-ROCHE-1236815

PATIENT
  Age: 77 Year
  Sex: Male
  Weight: 96.14 kg

DRUGS (20)
  1. RITUXIMAB [Suspect]
     Indication: DIFFUSE LARGE B-CELL LYMPHOMA
     Dosage: LAST DOSE PRIOR TO SAE ON 18/JUN/2013
     Route: 065
     Dates: start: 20130219, end: 20130319
  2. BORTEZOMIB [Suspect]
     Indication: DIFFUSE LARGE B-CELL LYMPHOMA
     Dosage: LAST DOSE PRIOR TO SAE ON 18/JUN/2013.
     Route: 065
     Dates: start: 20130226
  3. CYCLOPHOSPHAMIDE [Suspect]
     Indication: DIFFUSE LARGE B-CELL LYMPHOMA
     Dosage: LAST DOSE PRIOR TO SAE ON 18/JUN/2013
     Route: 065
     Dates: start: 20130219, end: 20130319
  4. DOXORUBICIN [Suspect]
     Indication: DIFFUSE LARGE B-CELL LYMPHOMA
     Dosage: LAST DOSE PRIOR TO SAE ON 18/JUN/2013.
     Route: 065
     Dates: start: 20130219, end: 20130319
  5. PREDNISONE [Suspect]
     Indication: DIFFUSE LARGE B-CELL LYMPHOMA
     Dosage: LAST DOSE PRIOR TO SAE ON 22/JUN/2013.
     Route: 065
     Dates: start: 20130226
  6. VINCRISTINE [Suspect]
     Indication: DIFFUSE LARGE B-CELL LYMPHOMA
     Dosage: LAST DOSE PRIOR TO SAE ON 18/JUN/2013.
     Route: 065
     Dates: start: 20130219, end: 20130319
  7. BACTRIM DS [Concomitant]
  8. DABIGATRAN [Concomitant]
     Route: 065
     Dates: start: 20130221
  9. OMEGA 3 [Concomitant]
  10. FLOMAX (UNITED STATES) [Concomitant]
  11. PRIMIDONE [Concomitant]
  12. SIMVASTATIN [Concomitant]
  13. FOSINOPRIL [Concomitant]
  14. TERAZOSIN [Concomitant]
  15. OMEPRAZOLE [Concomitant]
  16. FUROSEMIDE [Concomitant]
  17. GABAPENTIN [Concomitant]
  18. COUMADIN [Concomitant]
  19. HYDROCORTISONE [Concomitant]
  20. ZOFRAN [Concomitant]
     Route: 065
     Dates: start: 20130226

REACTIONS (8)
  - Neutropenia [Recovered/Resolved]
  - Asthenia [Recovered/Resolved]
  - Stomatitis [Recovered/Resolved]
  - Hypotension [Recovering/Resolving]
  - Thrombocytopenia [Not Recovered/Not Resolved]
  - Anaemia [Recovered/Resolved]
  - Diverticulum [Recovered/Resolved]
  - Gastrointestinal haemorrhage [Recovered/Resolved]
